FAERS Safety Report 9989878 (Version 2)
Quarter: 2014Q3

REPORT INFORMATION
  Report Type: Spontaneous
  Country: US (occurrence: None)
  Receive Date: 20131114
  Receipt Date: 20140926
  Transmission Date: 20150326
  Serious: No
  Sender: FDA-Public Use
  Company Number: JPI-P-033871

PATIENT
  Age: 24 Year
  Sex: Female
  Weight: 62.9 kg

DRUGS (6)
  1. ALLERGY MEDICINE (ALLERGY MEDICATION) [Concomitant]
  2. IBUPROFEN (IBUPROFEN) [Concomitant]
     Active Substance: IBUPROFEN
  3. XYREM [Suspect]
     Active Substance: SODIUM OXYBATE
     Indication: NARCOLEPSY
     Route: 048
     Dates: start: 20130710, end: 20130716
  4. MULTIVITAMIN (ASCORBIC ACID) [Concomitant]
  5. SYEDA (DROSPIRENONE AND ETHINYL ESTRADIOL) (DROSPIRENONE W/ETHINYLESTRADIOL) [Concomitant]
  6. PROBIOTIC (BIFIDOBACTERIUM LACTIS) [Concomitant]

REACTIONS (8)
  - Fluid retention [None]
  - Condition aggravated [None]
  - Weight decreased [None]
  - Pituitary tumour benign [None]
  - Swelling face [None]
  - Musculoskeletal stiffness [None]
  - Fatigue [None]
  - Peripheral swelling [None]

NARRATIVE: CASE EVENT DATE: 20130712
